FAERS Safety Report 10215826 (Version 1)
Quarter: 2014Q2

REPORT INFORMATION
  Report Type: Spontaneous
  Country: KR (occurrence: None)
  Receive Date: 20140602
  Receipt Date: 20140602
  Transmission Date: 20141212
  Serious: Yes (Other)
  Sender: FDA-Public Use
  Company Number: KR-20140017

PATIENT
  Age: 77 Year
  Sex: Male

DRUGS (3)
  1. GADOTERIC ACID [Suspect]
     Indication: ARTERIOGRAM CAROTID
     Route: 042
     Dates: start: 20140516, end: 20140516
  2. GADOTERIC ACID [Suspect]
     Indication: ARTERIOGRAM CAROTID
     Route: 042
     Dates: start: 20140516, end: 20140516
  3. NORMAL SALINE [Concomitant]

REACTIONS (4)
  - Loss of consciousness [None]
  - Blood pressure decreased [None]
  - Oxygen saturation decreased [None]
  - Chest discomfort [None]
